FAERS Safety Report 8707800 (Version 4)
Quarter: 2014Q1

REPORT INFORMATION
  Report Type: Report from Study
  Country: US (occurrence: US)
  Receive Date: 20120806
  Receipt Date: 20140214
  Transmission Date: 20141002
  Serious: Yes (Death, Other)
  Sender: FDA-Public Use
  Company Number: US-009507513-1207USA011468

PATIENT
  Sex: 0

DRUGS (3)
  1. MK-3034 [Suspect]
     Dosage: 800 MG, TID
     Route: 065
  2. PEGINTRON [Suspect]
     Indication: CHRONIC HEPATITIS C
     Dosage: TOTAL DAILY DOSE:1.5 MG 1 IN 1 WEEK
     Route: 065
  3. COPEGUS [Suspect]
     Indication: CHRONIC HEPATITIS C
     Dosage: 600-1400MG PER DAY BASED ON WEIGHT
     Route: 065

REACTIONS (3)
  - Sudden cardiac death [Fatal]
  - Cardiovascular disorder [Unknown]
  - Anaemia [Unknown]
